FAERS Safety Report 5064679-6 (Version None)
Quarter: 2006Q3

REPORT INFORMATION
  Report Type: 
  Country: None (occurrence: None)
  Receive Date: 20060728
  Receipt Date: 20060725
  Transmission Date: 20061208
  Serious: Yes (Other)
  Sender: FDA-Public Use
  Company Number: US-GLAXOSMITHKLINE-A0613492A

PATIENT
  Age: 30 Year
  Sex: Male

DRUGS (2)
  1. PAXIL [Suspect]
     Indication: DEPRESSION
     Dosage: 10MG PER DAY
     Route: 048
     Dates: start: 20060717, end: 20060724
  2. CELEXA [Concomitant]
     Indication: DRUG USE FOR UNKNOWN INDICATION
     Route: 048
     Dates: start: 20060701, end: 20060723

REACTIONS (7)
  - AGGRESSION [None]
  - DIZZINESS [None]
  - HYPOAESTHESIA [None]
  - HYPOAESTHESIA ORAL [None]
  - INSOMNIA [None]
  - SENSATION OF PRESSURE [None]
  - TESTICULAR PAIN [None]
